FAERS Safety Report 12968996 (Version 2)
Quarter: 2016Q4

REPORT INFORMATION
  Report Type: Spontaneous
  Country: US (occurrence: US)
  Receive Date: 20161123
  Receipt Date: 20161222
  Transmission Date: 20170207
  Serious: No
  Sender: FDA-Public Use
  Company Number: US-BRISTOL-MYERS SQUIBB COMPANY-BMS-2016-099931

PATIENT
  Sex: Male

DRUGS (1)
  1. ABILIFY [Suspect]
     Active Substance: ARIPIPRAZOLE
     Indication: OPPOSITIONAL DEFIANT DISORDER
     Dosage: 10 MG, QD
     Route: 065

REACTIONS (3)
  - Product use issue [Unknown]
  - Weight increased [Not Recovered/Not Resolved]
  - Gynaecomastia [Not Recovered/Not Resolved]
